FAERS Safety Report 5420723-5 (Version None)
Quarter: 2007Q3

REPORT INFORMATION
  Report Type: 
  Country: None (occurrence: None)
  Receive Date: 20070821
  Receipt Date: 20070810
  Transmission Date: 20080115
  Serious: Yes (Hospitalization, Other)
  Sender: FDA-Public Use
  Company Number: US-AVENTIS-200715710US

PATIENT
  Age: 55 Year
  Sex: Female

DRUGS (5)
  1. LOVENOX [Suspect]
     Indication: ATRIAL FIBRILLATION
  2. LOVENOX [Suspect]
  3. LOVENOX [Suspect]
     Indication: DILATATION ATRIAL
  4. LOVENOX [Suspect]
  5. CARDIOVASCULAR SYSTEM DRUGS [Concomitant]
     Dosage: DOSE: UNK

REACTIONS (17)
  - APPENDICITIS PERFORATED [None]
  - ATRIAL FIBRILLATION [None]
  - CELLULITIS [None]
  - CONTUSION [None]
  - DERMATITIS [None]
  - DRUG INEFFECTIVE [None]
  - EPISTAXIS [None]
  - HAEMORRHAGE [None]
  - LARYNGEAL DISORDER [None]
  - MUSCULAR WEAKNESS [None]
  - PERITONITIS [None]
  - SEPSIS [None]
  - SKIN DISCOLOURATION [None]
  - SKIN EXFOLIATION [None]
  - SKIN NODULE [None]
  - TRANSIENT ISCHAEMIC ATTACK [None]
  - UMBILICAL HERNIA [None]
